FAERS Safety Report 10269061 (Version 1)
Quarter: 2014Q2

REPORT INFORMATION
  Report Type: Spontaneous
  Country: GB (occurrence: GB)
  Receive Date: 20140630
  Receipt Date: 20140630
  Transmission Date: 20141212
  Serious: Yes (Hospitalization, Disabling, Other)
  Sender: FDA-Public Use
  Company Number: PHHY2014GB077409

PATIENT
  Age: 74 Year
  Sex: Male
  Weight: 101.6 kg

DRUGS (3)
  1. GABAPENTIN [Suspect]
     Indication: HEADACHE
     Dosage: 200 MG, TID, 100  TO 200MG 3 TIMES A DAY
     Route: 048
     Dates: end: 20140512
  2. GABAPENTIN [Suspect]
     Dosage: 100 MG, TID, 100MG INCREASED TO 200MG
     Route: 048
     Dates: start: 20140405
  3. SIMVASTATIN [Concomitant]

REACTIONS (6)
  - Vascular dementia [Recovering/Resolving]
  - Musculoskeletal stiffness [Recovering/Resolving]
  - Hypersomnia [Recovering/Resolving]
  - Pain [Unknown]
  - Confusional state [Unknown]
  - Dysarthria [Recovering/Resolving]
